FAERS Safety Report 9240219 (Version 1)
Quarter: 2013Q2

REPORT INFORMATION
  Report Type: Spontaneous
  Country: US (occurrence: None)
  Receive Date: 20130417
  Receipt Date: 20130417
  Transmission Date: 20140414
  Serious: Yes (Other)
  Sender: FDA-Public Use
  Company Number: CL-482-2013

PATIENT
  Age: 59 Year
  Sex: Male

DRUGS (1)
  1. CIPROFLOXACIN [Suspect]
     Indication: UPPER RESPIRATORY TRACT INFECTION
     Dosage: UNK TO UNK-3 OR }DAYS

REACTIONS (5)
  - Factor X deficiency [None]
  - Prothrombin time prolonged [None]
  - Activated partial thromboplastin time prolonged [None]
  - Sepsis [None]
  - Respiratory failure [None]
